FAERS Safety Report 9870155 (Version 1)
Quarter: 2014Q1

REPORT INFORMATION
  Report Type: Spontaneous
  Country: IT (occurrence: None)
  Receive Date: 20140131
  Receipt Date: 20140131
  Transmission Date: 20141002
  Serious: Yes (Life-Threatening)
  Sender: FDA-Public Use
  Company Number: FK201400282

PATIENT
  Age: 49 Year
  Sex: Female

DRUGS (4)
  1. PACLITAXEL [Suspect]
     Indication: LUNG ADENOCARCINOMA
     Dosage: 187.6 MG, CYCLICAL,
     Route: 042
     Dates: start: 20140114, end: 20140114
  2. RANIDIL(RANITIDINE HYDROCHLORIDE) [Concomitant]
  3. SOLDESAM(DEXAMETHASONE SODIUM PHOSPHATE) [Concomitant]
  4. ODANSETRON HIKMA (ODANSETRON HYDROCHLORIDE) [Concomitant]

REACTIONS (6)
  - Bronchostenosis [None]
  - Hyperpyrexia [None]
  - Hypertension [None]
  - Vomiting [None]
  - Malaise [None]
  - Infusion related reaction [None]
